FAERS Safety Report 10360907 (Version 1)
Quarter: 2014Q3

REPORT INFORMATION
  Report Type: Spontaneous
  Country: FR (occurrence: FR)
  Receive Date: 20140804
  Receipt Date: 20140804
  Transmission Date: 20150326
  Serious: Yes (Hospitalization, Other)
  Sender: FDA-Public Use
  Company Number: FR-BRISTOL-MYERS SQUIBB COMPANY-21250576

PATIENT
  Age: 87 Year
  Sex: Female

DRUGS (2)
  1. COUMADINE [Suspect]
     Active Substance: WARFARIN SODIUM
     Dosage: 1DF: ONE COUMADINE 2 MG, SCORED TABLET
     Route: 048
     Dates: end: 20140201
  2. PYOSTACINE [Suspect]
     Active Substance: PRISTINAMYCIN
     Dosage: FOR:PYOSTACINE 500 MG, SCORED FILM-COATED TABLET
     Route: 048
     Dates: start: 20140115, end: 20140201

REACTIONS (6)
  - Granulomatosis with polyangiitis [Unknown]
  - Anaemia [Recovered/Resolved]
  - Haematemesis [Recovered/Resolved]
  - International normalised ratio increased [Recovered/Resolved]
  - Hypotension [Recovered/Resolved]
  - Overdose [Unknown]

NARRATIVE: CASE EVENT DATE: 20140203
